FAERS Safety Report 25518174 (Version 1)
Quarter: 2025Q3

REPORT INFORMATION
  Report Type: Spontaneous
  Country: US (occurrence: US)
  Receive Date: 20250704
  Receipt Date: 20250704
  Transmission Date: 20251020
  Serious: Yes (Other)
  Sender: ORGANON
  Company Number: US-ORGANON-O2507USA000047

PATIENT
  Sex: Female

DRUGS (2)
  1. NEXPLANON [Suspect]
     Active Substance: ETONOGESTREL
     Route: 059
     Dates: start: 20230214
  2. NEXPLANON [Concomitant]
     Active Substance: ETONOGESTREL

REACTIONS (6)
  - Vaginal haemorrhage [Recovered/Resolved]
  - Vaginal haemorrhage [Recovered/Resolved]
  - Implant site pain [Not Recovered/Not Resolved]
  - Menstruation delayed [Not Recovered/Not Resolved]
  - Device dislocation [Not Recovered/Not Resolved]
  - Inappropriate schedule of product administration [Unknown]

NARRATIVE: CASE EVENT DATE: 20230214
